FAERS Safety Report 17417147 (Version 1)
Quarter: 2020Q1

REPORT INFORMATION
  Report Type: Spontaneous
  Country: US (occurrence: US)
  Receive Date: 20191217
  Receipt Date: 20191217
  Transmission Date: 20200409
  Serious: No
  Sender: FDA-Public Use
  Company Number: None

PATIENT
  Age: 33 Year
  Sex: Female

DRUGS (2)
  1. METHADONE [Suspect]
     Active Substance: METHADONE HYDROCHLORIDE
  2. NEWPORT NON MENTHOL 100S [Suspect]
     Active Substance: NICOTINE

REACTIONS (6)
  - Maternal exposure during pregnancy [None]
  - Uterine dilation and curettage [None]
  - Abortion spontaneous [None]
  - Maternal drugs affecting foetus [None]
  - Foetal death [None]
  - Vaginal haemorrhage [None]
